FAERS Safety Report 18336174 (Version 1)
Quarter: 2020Q4

REPORT INFORMATION
  Report Type: Report from Study
  Country: US (occurrence: US)
  Receive Date: 20201001
  Receipt Date: 20201001
  Transmission Date: 20210113
  Serious: No
  Sender: FDA-Public Use
  Company Number: NVSC2020US263388

PATIENT
  Sex: Female
  Weight: 117.5 kg

DRUGS (1)
  1. ILARIS [Suspect]
     Active Substance: CANAKINUMAB
     Indication: PRODUCT USED FOR UNKNOWN INDICATION
     Dosage: 150 MG(EVERY 8 WEEKS)
     Route: 065

REACTIONS (5)
  - Product dose omission issue [Unknown]
  - Urticaria [Unknown]
  - Oedema [Unknown]
  - Fatigue [Unknown]
  - Hypoacusis [Unknown]
